FAERS Safety Report 10920491 (Version 7)
Quarter: 2019Q3

REPORT INFORMATION
  Report Type: Report from Study
  Country: CA (occurrence: CA)
  Receive Date: 20150317
  Receipt Date: 20190701
  Transmission Date: 20191004
  Serious: Yes (Other)
  Sender: FDA-Public Use
  Company Number: CA-ROCHE-1247868

PATIENT
  Age: 72 Year
  Sex: Female
  Weight: 68 kg

DRUGS (9)
  1. RITUXAN [Suspect]
     Active Substance: RITUXIMAB
     Indication: RHEUMATOID ARTHRITIS
     Route: 042
     Dates: start: 20070118
  2. METHYLPREDNISOLONE. [Concomitant]
     Active Substance: METHYLPREDNISOLONE
     Indication: PREMEDICATION
     Route: 042
     Dates: start: 20120724
  3. METHOTREXATE. [Concomitant]
     Active Substance: METHOTREXATE
  4. DIPHENHYDRAMINE HCL [Concomitant]
     Active Substance: DIPHENHYDRAMINE HYDROCHLORIDE
     Indication: PREMEDICATION
     Route: 048
     Dates: start: 20120724
  5. PAXIL [Concomitant]
     Active Substance: PAROXETINE HYDROCHLORIDE
  6. ACETAMINOPHEN. [Concomitant]
     Active Substance: ACETAMINOPHEN
     Indication: PREMEDICATION
     Route: 048
     Dates: start: 20120724
  7. FOSAMAX [Concomitant]
     Active Substance: ALENDRONATE SODIUM
  8. FOLIC ACID. [Concomitant]
     Active Substance: FOLIC ACID
  9. DETROL LA [Concomitant]
     Active Substance: TOLTERODINE TARTRATE
     Route: 065

REACTIONS (15)
  - Heart rate decreased [Unknown]
  - Lung infection [Recovered/Resolved]
  - Oxygen saturation decreased [Unknown]
  - Nephrolithiasis [Recovering/Resolving]
  - Orthostatic hypotension [Unknown]
  - Chronic obstructive pulmonary disease [Unknown]
  - Arthralgia [Not Recovered/Not Resolved]
  - Infusion related reaction [Unknown]
  - Injection site extravasation [Recovered/Resolved]
  - Kidney infection [Recovering/Resolving]
  - Blood cholesterol increased [Unknown]
  - Hypothyroidism [Unknown]
  - Swelling [Not Recovered/Not Resolved]
  - Blood pressure increased [Unknown]
  - Urinary tract infection [Recovered/Resolved]

NARRATIVE: CASE EVENT DATE: 201306
